FAERS Safety Report 10022127 (Version 1)
Quarter: 2014Q1

REPORT INFORMATION
  Report Type: Spontaneous
  Country: US (occurrence: US)
  Receive Date: 20140319
  Receipt Date: 20140319
  Transmission Date: 20141002
  Serious: Yes (Other)
  Sender: FDA-Public Use
  Company Number: US-GLAXOSMITHKLINE-A1065499A

PATIENT
  Age: 42 Year
  Sex: Female

DRUGS (1)
  1. WELLBUTRIN SR [Suspect]
     Indication: MENTAL DISORDER
     Dosage: 100MG UNKNOWN
     Route: 065

REACTIONS (2)
  - Cardiac operation [Unknown]
  - Hysterectomy [Unknown]
